FAERS Safety Report 5467554-8 (Version None)
Quarter: 2007Q3

REPORT INFORMATION
  Report Type: 
  Country: None (occurrence: None)
  Receive Date: 20070921
  Receipt Date: 20070912
  Transmission Date: 20080115
  Serious: Yes (Other)
  Sender: FDA-Public Use
  Company Number: 2007US000265

PATIENT
  Age: 72 Year
  Sex: Female

DRUGS (1)
  1. VESICARE [Suspect]
     Indication: URINARY INCONTINENCE
     Dosage: 5 MG, ORAL
     Route: 048
     Dates: start: 20060601, end: 20061201

REACTIONS (3)
  - ELECTROCARDIOGRAM QT PROLONGED [None]
  - FATIGUE [None]
  - PALPITATIONS [None]
